FAERS Safety Report 26159958 (Version 1)
Quarter: 2025Q4

REPORT INFORMATION
  Report Type: Spontaneous
  Country: US (occurrence: US)
  Receive Date: 20251216
  Receipt Date: 20251216
  Transmission Date: 20260118
  Serious: Yes (Other)
  Sender: CIPLA
  Company Number: US-CIPLA (EU) LIMITED-2025US15583

PATIENT

DRUGS (1)
  1. DIMETHYL FUMARATE [Suspect]
     Active Substance: DIMETHYL FUMARATE
     Indication: Relapsing-remitting multiple sclerosis
     Dosage: UNK, FOR 4 YEARS
     Route: 065

REACTIONS (3)
  - Blastomycosis [Recovering/Resolving]
  - Central nervous system fungal infection [Recovering/Resolving]
  - Lymphopenia [Unknown]
